FAERS Safety Report 8618712-2 (Version None)
Quarter: 2012Q3

REPORT INFORMATION
  Report Type: 
  Country: None (occurrence: None)
  Receive Date: 20120824
  Receipt Date: 20120815
  Transmission Date: 20120928
  Serious: Yes (Other)
  Sender: FDA-Public Use
  Company Number: GB-JNJFOC-20120809834

PATIENT
  Sex: Female

DRUGS (1)
  1. STELARA [Suspect]
     Indication: PSORIASIS
     Route: 058

REACTIONS (6)
  - INFLUENZA [None]
  - BONE PAIN [None]
  - DECREASED APPETITE [None]
  - PAROSMIA [None]
  - DIARRHOEA [None]
  - HYPERHIDROSIS [None]
